FAERS Safety Report 5082089-2 (Version None)
Quarter: 2006Q3

REPORT INFORMATION
  Report Type: 
  Country: None (occurrence: None)
  Receive Date: 20060815
  Receipt Date: 20060815
  Transmission Date: 20061208
  Serious: Yes (Hospitalization)
  Sender: FDA-Public Use
  Company Number: None

PATIENT
  Sex: Male
  Weight: 102 kg

DRUGS (12)
  1. TOPOTECAN 0.75MG/M2 ON DAYS 2 - 6 OF 28 DAY CYCLE [Suspect]
     Indication: GLIOBLASTOMA MULTIFORME
     Dosage: 1.00MG PO X 5 DAYS Q29 DAYS
     Route: 048
     Dates: start: 20050102, end: 20050508
  2. TEMODAR [Suspect]
     Indication: GLIOBLASTOMA MULTIFORME
     Dosage: 200MG PO X 5 DAYS Q 29 DAYS
     Route: 048
     Dates: start: 20050503, end: 20050507
  3. DECADRON [Concomitant]
  4. KEPPRA [Concomitant]
  5. LAMICTAL [Concomitant]
  6. KLONOPIN [Concomitant]
  7. LEXAPRO [Concomitant]
  8. AMARYL [Concomitant]
  9. K-DUR 10 [Concomitant]
  10. PEPCID [Concomitant]
  11. HYZAAR [Concomitant]
  12. LACTULOSE [Concomitant]

REACTIONS (2)
  - GLIOBLASTOMA MULTIFORME [None]
  - MALIGNANT NEOPLASM PROGRESSION [None]
